FAERS Safety Report 4598120-4 (Version None)
Quarter: 2005Q1

REPORT INFORMATION
  Report Type: 
  Country: None (occurrence: None)
  Receive Date: 20050301
  Receipt Date: 20050301
  Transmission Date: 20050727
  Serious: Yes (Hospitalization)
  Sender: FDA-Public Use
  Company Number: None

PATIENT
  Sex: Female
  Weight: 48.5349 kg

DRUGS (5)
  1. CISPLATIN [Suspect]
     Indication: RECTAL CANCER
     Dosage: 107 MG OVER ONE HOUR IV
     Route: 042
     Dates: start: 20050214
  2. FLUOROURACIL [Suspect]
     Indication: RECTAL CANCER
     Dosage: 1421 MG X 96 HOURS IV
     Route: 042
     Dates: start: 20050214, end: 20050219
  3. DIFLUCAN [Concomitant]
  4. LORTAB [Concomitant]
  5. MAGIC MOUTHWASH [Concomitant]

REACTIONS (1)
  - STOMATITIS [None]
